FAERS Safety Report 12231778 (Version 2)
Quarter: 2016Q2

REPORT INFORMATION
  Report Type: Spontaneous
  Country: US (occurrence: US)
  Receive Date: 20160401
  Receipt Date: 20160517
  Transmission Date: 20160815
  Serious: Yes (Other)
  Sender: FDA-Public Use
  Company Number: US-VALIDUS PHARMACEUTICALS LLC-US-2016VAL000684

PATIENT

DRUGS (8)
  1. ALBUTEROL                          /00139501/ [Suspect]
     Active Substance: ALBUTEROL
     Indication: PRODUCT USED FOR UNKNOWN INDICATION
     Dosage: UNK
  2. FLOLAN [Suspect]
     Active Substance: EPOPROSTENOL SODIUM
     Dosage: 52.1 NG/KG/MIN
  3. FLOLAN [Suspect]
     Active Substance: EPOPROSTENOL SODIUM
     Dosage: 56.2 NG/KG/MIN
  4. FLOLAN [Suspect]
     Active Substance: EPOPROSTENOL SODIUM
     Dosage: 56.0 NG/KG/MIN
  5. LASIX [Suspect]
     Active Substance: FUROSEMIDE
     Indication: OEDEMA
     Dosage: UNK
     Route: 065
  6. FLOLAN [Suspect]
     Active Substance: EPOPROSTENOL SODIUM
     Indication: PULMONARY ARTERIAL HYPERTENSION
     Dosage: 49.7 NG/KG/MIN
     Dates: start: 20060725
  7. FLOLAN [Suspect]
     Active Substance: EPOPROSTENOL SODIUM
     Dosage: 52.7 NG/KG/MIN
  8. FLOLAN [Suspect]
     Active Substance: EPOPROSTENOL SODIUM
     Dosage: 22 NG/KG/MIN

REACTIONS (22)
  - Device dislocation [Unknown]
  - Pain [Unknown]
  - Dental prosthesis placement [Unknown]
  - Weight decreased [Recovering/Resolving]
  - Heart rate increased [Unknown]
  - Ejection fraction abnormal [Unknown]
  - Muscle spasms [Unknown]
  - Echocardiogram abnormal [Unknown]
  - Oedema [Unknown]
  - Device failure [Unknown]
  - Carbon dioxide abnormal [Unknown]
  - Abnormal behaviour [Unknown]
  - Hypotension [Recovering/Resolving]
  - Depression [Unknown]
  - Pain in jaw [Unknown]
  - Blood pressure abnormal [Unknown]
  - Anxiety [Unknown]
  - Nausea [Unknown]
  - Vomiting [Unknown]
  - Catheter site haemorrhage [Unknown]
  - Diarrhoea [Unknown]
  - Adrenal disorder [Unknown]
